FAERS Safety Report 5962824-9 (Version None)
Quarter: 2008Q4

REPORT INFORMATION
  Report Type: 
  Country: None (occurrence: None)
  Receive Date: 20081124
  Receipt Date: 20081021
  Transmission Date: 20090506
  Serious: No
  Sender: FDA-Public Use
  Company Number: US-BAYER-200822799NA

PATIENT
  Age: 27 Year
  Sex: Female
  Weight: 59 kg

DRUGS (1)
  1. MIRENA [Suspect]
     Indication: CONTRACEPTION
     Route: 015
     Dates: start: 20080101, end: 20080501

REACTIONS (6)
  - ALOPECIA [None]
  - DIZZINESS [None]
  - HYPOAESTHESIA ORAL [None]
  - MALAISE [None]
  - PROCEDURAL PAIN [None]
  - WEIGHT INCREASED [None]
